FAERS Safety Report 6243542-9 (Version None)
Quarter: 2009Q2

REPORT INFORMATION
  Report Type: 
  Country: None (occurrence: None)
  Receive Date: 20090624
  Receipt Date: 20090619
  Transmission Date: 20091009
  Serious: Yes (Death, Life-Threatening, Hospitalization)
  Sender: FDA-Public Use
  Company Number: PHHO2004IT16923

PATIENT
  Sex: Male
  Weight: 78 kg

DRUGS (3)
  1. NEORAL [Suspect]
     Indication: LIVER TRANSPLANT
     Dosage: 125 MG / DAY
     Route: 048
     Dates: start: 20040828, end: 20041127
  2. NEORAL [Suspect]
     Dosage: 50 MG / DAY
     Route: 048
  3. NEORAL [Suspect]
     Dosage: 75 MG, QD
     Route: 048
     Dates: end: 20041212

REACTIONS (8)
  - AMMONIA INCREASED [None]
  - DISEASE PROGRESSION [None]
  - HEPATITIS [None]
  - HEPATORENAL SYNDROME [None]
  - JAUNDICE [None]
  - METABOLIC ACIDOSIS [None]
  - RENAL FAILURE ACUTE [None]
  - VOMITING [None]
